FAERS Safety Report 4468268-3 (Version None)
Quarter: 2004Q4

REPORT INFORMATION
  Report Type: 
  Country: None (occurrence: None)
  Receive Date: 20041004
  Receipt Date: 20040924
  Transmission Date: 20050328
  Serious: Yes (Hospitalization, Other)
  Sender: FDA-Public Use
  Company Number: 2004235500AU

PATIENT
  Age: 85 Year
  Sex: Male

DRUGS (6)
  1. ALDACTONE [Suspect]
     Dosage: 40 MG, QD; 40 MG, BID; 40 MG, TID
     Dates: start: 20031201
  2. FISH OIL (FISH OIL) [Concomitant]
  3. WARFARIN SODIUM [Concomitant]
  4. DILATREND [Concomitant]
  5. LASIX [Concomitant]
  6. RAMIPRIL [Concomitant]

REACTIONS (5)
  - FEELING ABNORMAL [None]
  - LOSS OF CONSCIOUSNESS [None]
  - RASH PRURITIC [None]
  - RASH PUSTULAR [None]
  - VERTIGO [None]
